FAERS Safety Report 18177862 (Version 2)
Quarter: 2020Q3

REPORT INFORMATION
  Report Type: Spontaneous
  Country: TR (occurrence: TR)
  Receive Date: 20200820
  Receipt Date: 20200923
  Transmission Date: 20201103
  Serious: Yes (Hospitalization, Other)
  Sender: FDA-Public Use
  Company Number: NVSC2020TR229640

PATIENT
  Age: 45 Year
  Sex: Female

DRUGS (1)
  1. SECUKINUMAB. [Suspect]
     Active Substance: SECUKINUMAB
     Indication: ANKYLOSING SPONDYLITIS
     Dosage: 150 MG, QW
     Route: 065

REACTIONS (6)
  - Inflammatory bowel disease [Recovered/Resolved]
  - Diarrhoea [Recovered/Resolved]
  - Rectal tenesmus [Recovered/Resolved]
  - Weight decreased [Recovered/Resolved]
  - Bowel movement irregularity [Recovered/Resolved]
  - Abdominal pain [Recovered/Resolved]
